FAERS Safety Report 20958760 (Version 2)
Quarter: 2022Q2

REPORT INFORMATION
  Report Type: Report from Study
  Country: CA (occurrence: CA)
  Receive Date: 20220614
  Receipt Date: 20220616
  Transmission Date: 20220720
  Serious: Yes (Disabling, Other)
  Sender: FDA-Public Use
  Company Number: CA-HLS-202200086

PATIENT
  Age: 22 Year
  Sex: Female
  Weight: 63 kg

DRUGS (6)
  1. CLOZARIL [Suspect]
     Active Substance: CLOZAPINE
     Indication: Schizoaffective disorder
     Route: 048
     Dates: start: 20211201, end: 20211206
  2. CLOZARIL [Suspect]
     Active Substance: CLOZAPINE
     Indication: Schizoaffective disorder
     Route: 048
     Dates: start: 20211127
  3. CLOZARIL [Suspect]
     Active Substance: CLOZAPINE
     Indication: Schizoaffective disorder
     Dosage: 125 MG
     Route: 048
     Dates: start: 20211207, end: 20220110
  4. CLOZARIL [Suspect]
     Active Substance: CLOZAPINE
     Indication: Schizoaffective disorder
     Dosage: 150 MG; DRUG START DAYE:11-JAN-2022
     Route: 048
  5. CLOZARIL [Suspect]
     Active Substance: CLOZAPINE
     Indication: Schizoaffective disorder
     Dosage: 175MG AT BEDTIME
     Route: 048
     Dates: start: 20211127
  6. ESCITALOPRAM [Concomitant]
     Active Substance: ESCITALOPRAM OXALATE
     Indication: Product used for unknown indication
     Dosage: 20 MG EVERY BEDTIME
     Route: 048
     Dates: start: 20220322

REACTIONS (13)
  - Blunted affect [Recovered/Resolved]
  - Anxiety [Not Recovered/Not Resolved]
  - Tachycardia [Recovered/Resolved]
  - Dizziness [Recovered/Resolved]
  - Hallucination, auditory [Recovered/Resolved]
  - Tachycardia [Not Recovered/Not Resolved]
  - Psychiatric symptom [Recovered/Resolved]
  - Depressed mood [Recovered/Resolved]
  - Orthostatic hypotension [Not Recovered/Not Resolved]
  - Panic attack [Unknown]
  - Dyspnoea [Recovered/Resolved]
  - Sinus arrhythmia [Unknown]
  - Thinking abnormal [Recovered/Resolved]

NARRATIVE: CASE EVENT DATE: 20211208
